FAERS Safety Report 5605712-X (Version None)
Quarter: 2008Q1

REPORT INFORMATION
  Report Type: 
  Country: None (occurrence: None)
  Receive Date: 20080129
  Receipt Date: 20080122
  Transmission Date: 20080703
  Serious: Yes (Hospitalization)
  Sender: FDA-Public Use
  Company Number: ES-BAYER-200811563GPV

PATIENT
  Age: 50 Year
  Sex: Female

DRUGS (1)
  1. ULTRAVIST 300 MG I/ML (IOPROMIDE) [Suspect]
     Indication: SCAN
     Route: 042
     Dates: start: 20061006, end: 20061006

REACTIONS (5)
  - DYSPNOEA [None]
  - NASAL CONGESTION [None]
  - PARAESTHESIA [None]
  - SNEEZING [None]
  - THROAT IRRITATION [None]
